FAERS Safety Report 4765507-6 (Version None)
Quarter: 2005Q3

REPORT INFORMATION
  Report Type: 
  Country: None (occurrence: None)
  Receive Date: 20050912
  Receipt Date: 20050901
  Transmission Date: 20060218
  Serious: Yes (Life-Threatening, Hospitalization)
  Sender: FDA-Public Use
  Company Number: JP-JNJFOC-20050900771

PATIENT
  Sex: Female
  Weight: 42 kg

DRUGS (11)
  1. REMICADE [Suspect]
     Route: 042
  2. REMICADE [Suspect]
     Route: 042
  3. REMICADE [Suspect]
     Route: 042
  4. REMICADE [Suspect]
     Indication: RHEUMATOID ARTHRITIS
     Route: 042
  5. RHEUMATREX [Suspect]
     Route: 048
  6. RHEUMATREX [Suspect]
     Indication: RHEUMATOID ARTHRITIS
     Route: 048
  7. ADRENAL HORMONE PREPARATIONS [Concomitant]
     Indication: RHEUMATOID ARTHRITIS
  8. SOLU-MEDROL [Concomitant]
     Indication: PREMEDICATION
     Route: 042
  9. NEO-MINOPHAGEN-C [Concomitant]
     Indication: PREMEDICATION
     Route: 042
  10. REMICUT [Concomitant]
     Indication: PREMEDICATION
     Route: 048
  11. SELOKEN [Concomitant]
     Indication: ARRHYTHMIA
     Route: 048

REACTIONS (3)
  - CARDIAC ARREST [None]
  - DRUG ADMINISTRATION ERROR [None]
  - VENTRICULAR FIBRILLATION [None]
